FAERS Safety Report 7068678-4 (Version None)
Quarter: 2010Q4

REPORT INFORMATION
  Report Type: 
  Country: None (occurrence: None)
  Receive Date: 20101027
  Receipt Date: 20101027
  Transmission Date: 20110411
  Serious: Yes (Hospitalization)
  Sender: FDA-Public Use
  Company Number: None

PATIENT
  Age: 5 Month
  Sex: Female
  Weight: 6.3504 kg

DRUGS (1)
  1. HYLAND'S TEETHING TABLETS NOT INDICATED ON BOTTLE HYLAND'S INC. [Suspect]
     Indication: TEETHING
     Dosage: 2 TABLETS EVERY 2 HOURS PO
     Route: 048
     Dates: start: 20101015, end: 20101023

REACTIONS (4)
  - CRYING [None]
  - CYANOSIS [None]
  - OXYGEN SATURATION DECREASED [None]
  - SCREAMING [None]
